FAERS Safety Report 10907220 (Version 1)
Quarter: 2015Q1

REPORT INFORMATION
  Report Type: Spontaneous
  Country: US (occurrence: None)
  Receive Date: 20150309
  Receipt Date: 20150309
  Transmission Date: 20150721
  Serious: Yes (Other)
  Sender: FDA-Public Use
  Company Number: None

PATIENT
  Age: 58 Year
  Sex: Female
  Weight: 92.7 kg

DRUGS (11)
  1. TRAMADOL 50 MG [Suspect]
     Active Substance: TRAMADOL
     Indication: PAIN MANAGEMENT
     Dosage: 1 TABLET, EVERY 4 HOURS PRN
     Route: 048
     Dates: start: 20150221, end: 20150224
  2. ASPIRIN. [Concomitant]
     Active Substance: ASPIRIN
  3. GABAPENTIN. [Concomitant]
     Active Substance: GABAPENTIN
  4. INSULIN GLARGINE [Concomitant]
     Active Substance: INSULIN GLARGINE
  5. FLUOXETINE [Concomitant]
     Active Substance: FLUOXETINE\FLUOXETINE HYDROCHLORIDE
  6. ATORVASTATIN [Concomitant]
     Active Substance: ATORVASTATIN
  7. METFORMIN [Concomitant]
     Active Substance: METFORMIN HYDROCHLORIDE
  8. HYDROCHLOROTHIAZIDE. [Concomitant]
     Active Substance: HYDROCHLOROTHIAZIDE
  9. TRAMADOL 50 MG [Suspect]
     Active Substance: TRAMADOL
     Indication: POSTOPERATIVE CARE
     Dosage: 1 TABLET, EVERY 4 HOURS PRN
     Route: 048
     Dates: start: 20150221, end: 20150224
  10. DOCUSATE [Concomitant]
     Active Substance: DOCUSATE
  11. CANDESARTAN [Concomitant]
     Active Substance: CANDESARTAN

REACTIONS (1)
  - Transaminases increased [None]

NARRATIVE: CASE EVENT DATE: 20150223
